FAERS Safety Report 18251448 (Version 3)
Quarter: 2020Q4

REPORT INFORMATION
  Report Type: Spontaneous
  Country: US (occurrence: US)
  Receive Date: 20200910
  Receipt Date: 20201012
  Transmission Date: 20210113
  Serious: Yes (Other)
  Sender: FDA-Public Use
  Company Number: US-AMGEN-USASP2020143593

PATIENT
  Age: 48 Year
  Sex: Male

DRUGS (7)
  1. ENBREL [Suspect]
     Active Substance: ETANERCEPT
     Indication: PRODUCT USED FOR UNKNOWN INDICATION
     Dosage: UNK
     Route: 065
  2. EFFEXOR [Concomitant]
     Active Substance: VENLAFAXINE HYDROCHLORIDE
  3. VENLAFAXINE [Concomitant]
     Active Substance: VENLAFAXINE HYDROCHLORIDE
     Dosage: UNK DOSE DECREASED (225 MG) TO (3 7. 5 MG)
  4. HUMIRA [Suspect]
     Active Substance: ADALIMUMAB
     Indication: PSORIASIS
     Dosage: 40 MILLIGRAM, QWK (1 IN 1 WEEK)
     Route: 058
     Dates: start: 20200623
  5. HUMIRA [Suspect]
     Active Substance: ADALIMUMAB
     Indication: PSORIATIC ARTHROPATHY
     Dosage: 40 MILLIGRAM, Q2WK (1 IN 2 WEEK)
     Route: 058
     Dates: start: 20200611, end: 202006
  6. DOXYCYCLINE. [Concomitant]
     Active Substance: DOXYCYCLINE
     Dosage: UNK
  7. MELOXICAM. [Concomitant]
     Active Substance: MELOXICAM
     Dosage: UNK

REACTIONS (17)
  - Joint swelling [Recovering/Resolving]
  - Joint stiffness [Recovering/Resolving]
  - Acne [Unknown]
  - Scab [Unknown]
  - Fracture [Unknown]
  - Hidradenitis [Recovering/Resolving]
  - Device fastener issue [Unknown]
  - Fracture nonunion [Not Recovered/Not Resolved]
  - Pain [Recovering/Resolving]
  - Migraine [Not Recovered/Not Resolved]
  - Rash [Unknown]
  - Device breakage [Unknown]
  - Osteoarthritis [Unknown]
  - Hyperhidrosis [Recovering/Resolving]
  - Hot flush [Not Recovered/Not Resolved]
  - Arthralgia [Recovering/Resolving]
  - Nasal ulcer [Unknown]

NARRATIVE: CASE EVENT DATE: 2020
